FAERS Safety Report 9287719 (Version 1)
Quarter: 2013Q2

REPORT INFORMATION
  Report Type: Spontaneous
  Country: MA (occurrence: MA)
  Receive Date: 20130514
  Receipt Date: 20130514
  Transmission Date: 20140414
  Serious: Yes (Other)
  Sender: FDA-Public Use
  Company Number: PHHY2013MA047412

PATIENT
  Sex: Male

DRUGS (2)
  1. STALEVO [Suspect]
     Indication: PARKINSON^S DISEASE
     Dosage: 2 DF/DAY
  2. MODOPAR [Concomitant]

REACTIONS (2)
  - Face oedema [Unknown]
  - Urticaria [Unknown]
